FAERS Safety Report 16774724 (Version 2)
Quarter: 2019Q4

REPORT INFORMATION
  Report Type: Spontaneous
  Country: US (occurrence: US)
  Receive Date: 20190905
  Receipt Date: 20191001
  Transmission Date: 20200122
  Serious: No
  Sender: FDA-Public Use
  Company Number: US-HETERO-HET2019US01210

PATIENT

DRUGS (1)
  1. LEVOCETIRIZINE [Suspect]
     Active Substance: LEVOCETIRIZINE
     Indication: MAST CELL ACTIVATION SYNDROME
     Dosage: 5 MG
     Route: 065

REACTIONS (2)
  - Malaise [Unknown]
  - Therapeutic product effect incomplete [Unknown]
